FAERS Safety Report 18257109 (Version 1)
Quarter: 2020Q3

REPORT INFORMATION
  Report Type: Spontaneous
  Country: US (occurrence: US)
  Receive Date: 20200910
  Receipt Date: 20200910
  Transmission Date: 20201103
  Serious: Yes (Hospitalization)
  Sender: FDA-Public Use
  Company Number: None

PATIENT
  Age: 56 Year
  Sex: Male
  Weight: 92.8 kg

DRUGS (5)
  1. NS 0.9% + THIAMINE 100 MG + FOLIC ACID 1 MG + MULTIVITAMIN [Suspect]
     Active Substance: VITAMINS
     Indication: ALCOHOL WITHDRAWAL SYNDROME
     Dosage: ?          OTHER FREQUENCY:ONE?TIME;?
     Route: 042
     Dates: start: 20200830, end: 20200830
  2. DESMOPRESSIN [Concomitant]
     Active Substance: DESMOPRESSIN
     Dates: start: 20200901, end: 20200901
  3. DEXTROSE 5% WITH WATER [Concomitant]
     Dates: start: 20200831, end: 20200903
  4. NS 0.9% + THIAMINE 100 MG + FOLIC ACID 1 MG + MULTIVITAMIN [Suspect]
     Active Substance: VITAMINS
     Indication: ALCOHOL POISONING
     Dosage: ?          OTHER FREQUENCY:ONE?TIME;?
     Route: 042
     Dates: start: 20200830, end: 20200830
  5. NS + THIAMINE + FOLIC ACID + MULTIVITAMIN [Concomitant]
     Dates: start: 20200830, end: 20200830

REACTIONS (2)
  - Tremor [None]
  - Hyponatraemia [None]

NARRATIVE: CASE EVENT DATE: 20200830
